FAERS Safety Report 9701842 (Version 2)
Quarter: 2013Q4

REPORT INFORMATION
  Report Type: Spontaneous
  Country: US (occurrence: US)
  Receive Date: 20131121
  Receipt Date: 20131219
  Transmission Date: 20140711
  Serious: No
  Sender: FDA-Public Use
  Company Number: US-PFIZER INC-2013330340

PATIENT
  Age: 58 Year
  Sex: Male

DRUGS (3)
  1. XELJANZ [Suspect]
     Indication: RHEUMATOID ARTHRITIS
     Dosage: 5 MG, 2X/DAY
     Route: 048
     Dates: start: 201308
  2. XELJANZ [Suspect]
     Dosage: 5 MG, 2X/DAY
     Route: 048
     Dates: start: 201308
  3. ASPIR-LOW EC [Concomitant]
     Dosage: 81 MG

REACTIONS (7)
  - Drug dose omission [Unknown]
  - Drug ineffective [Unknown]
  - Visual impairment [Unknown]
  - Dyskinesia [Unknown]
  - Muscle spasms [Unknown]
  - Dyspnoea [Unknown]
  - Wheezing [Unknown]
